FAERS Safety Report 7608752-4 (Version None)
Quarter: 2011Q3

REPORT INFORMATION
  Report Type: 
  Country: None (occurrence: None)
  Receive Date: 20110714
  Receipt Date: 20110714
  Transmission Date: 20111222
  Serious: Yes (Hospitalization)
  Sender: FDA-Public Use
  Company Number: None

PATIENT
  Sex: Female
  Weight: 23.8 kg

DRUGS (1)
  1. ISONIAZID [Suspect]
     Indication: TUBERCULIN TEST POSITIVE
     Dosage: 300 MG
     Route: 048
     Dates: start: 20110317, end: 20110404

REACTIONS (9)
  - GALLBLADDER DISORDER [None]
  - ALANINE AMINOTRANSFERASE INCREASED [None]
  - LIVER FUNCTION TEST ABNORMAL [None]
  - BLOOD BILIRUBIN INCREASED [None]
  - OCULAR ICTERUS [None]
  - GAMMA-GLUTAMYLTRANSFERASE INCREASED [None]
  - DIARRHOEA [None]
  - ASPARTATE AMINOTRANSFERASE INCREASED [None]
  - LIVER PALPABLE SUBCOSTAL [None]
